FAERS Safety Report 6448280-5 (Version None)
Quarter: 2009Q4

REPORT INFORMATION
  Report Type: 
  Country: None (occurrence: None)
  Receive Date: 20091120
  Receipt Date: 20091118
  Transmission Date: 20100525
  Serious: No
  Sender: FDA-Public Use
  Company Number: US-ROXANE LABORATORIES, INC.-2009-RO-01182RO

PATIENT
  Sex: Female

DRUGS (1)
  1. FLECAINIDE ACETATE [Suspect]
     Indication: ARRHYTHMIA
     Dates: start: 20080930

REACTIONS (2)
  - NASAL CONGESTION [None]
  - POSTNASAL DRIP [None]
